FAERS Safety Report 15869555 (Version 1)
Quarter: 2019Q1

REPORT INFORMATION
  Report Type: Spontaneous
  Country: US (occurrence: US)
  Receive Date: 20190125
  Receipt Date: 20190125
  Transmission Date: 20190417
  Serious: Yes (Other)
  Sender: FDA-Public Use
  Company Number: US-PFIZER INC-2019027307

PATIENT
  Age: 47 Year
  Sex: Female
  Weight: 84.82 kg

DRUGS (4)
  1. SUBUTEX ODT [Concomitant]
     Indication: PAIN
     Dosage: 2 MG, 3X/DAY
     Route: 060
     Dates: start: 201710
  2. CLONIDINE. [Concomitant]
     Active Substance: CLONIDINE
     Indication: PAIN
     Dosage: 0.5 MG, 3X/DAY (MORNING, AFTERNOON AND NIGHT)
     Route: 048
     Dates: start: 201804
  3. LYRICA [Suspect]
     Active Substance: PREGABALIN
     Dosage: 300 MG IN MORNING AND 150 MG AT NIGHT (450 MG, DAILY)
     Route: 048
  4. LYRICA [Suspect]
     Active Substance: PREGABALIN
     Indication: SKIN DISORDER
     Dosage: 150 MG, 2X/DAY
     Route: 048
     Dates: start: 2017

REACTIONS (5)
  - Staphylococcal infection [Recovering/Resolving]
  - Skin lesion [Recovering/Resolving]
  - Product use in unapproved indication [Not Recovered/Not Resolved]
  - Gait inability [Recovered/Resolved]
  - Product dose omission [Recovered/Resolved]

NARRATIVE: CASE EVENT DATE: 2017
